FAERS Safety Report 8945781 (Version 3)
Quarter: 2013Q1

REPORT INFORMATION
  Report Type: Spontaneous
  Country: FR (occurrence: FR)
  Receive Date: 20121205
  Receipt Date: 20130306
  Transmission Date: 20140127
  Serious: Yes (Hospitalization, Other)
  Sender: FDA-Public Use
  Company Number: FR-MERCK-1211FRA007899

PATIENT
  Age: 66 Year
  Sex: Male
  Weight: 85 kg

DRUGS (3)
  1. JANUVIA [Suspect]
     Indication: TYPE 2 DIABETES MELLITUS
     Dosage: 100 MG, QD
     Route: 048
     Dates: start: 20121010, end: 20121128
  2. METFORMIN [Concomitant]
     Dosage: 2 DF, UNK
     Route: 048
  3. NOVO-NORM [Concomitant]
     Dosage: 1 DF, TID

REACTIONS (2)
  - Diabetes mellitus inadequate control [Unknown]
  - Lipase increased [Recovered/Resolved]
